FAERS Safety Report 4421904-X (Version None)
Quarter: 2004Q3

REPORT INFORMATION
  Report Type: 
  Country: None (occurrence: None)
  Receive Date: 20040709
  Receipt Date: 20030904
  Transmission Date: 20050211
  Serious: Yes (Other)
  Sender: FDA-Public Use
  Company Number: US-SHR-03-010340

PATIENT
  Age: 70 Year
  Sex: Female

DRUGS (3)
  1. ULTRAVIST 300 [Suspect]
     Indication: COMPUTERISED TOMOGRAM
     Dosage: 125 ML, 1 DOSE, INTRVENOUS
     Route: 042
     Dates: start: 20030626, end: 20030626
  2. PREDNISONE [Concomitant]
  3. BENADRYL [Concomitant]

REACTIONS (5)
  - DYSPNOEA [None]
  - FACE OEDEMA [None]
  - HYPERSENSITIVITY [None]
  - OEDEMA PERIPHERAL [None]
  - THROAT TIGHTNESS [None]
